FAERS Safety Report 5489221-7 (Version None)
Quarter: 2007Q4

REPORT INFORMATION
  Report Type: 
  Country: None (occurrence: None)
  Receive Date: 20071018
  Receipt Date: 20071011
  Transmission Date: 20080405
  Serious: Yes (Life-Threatening)
  Sender: FDA-Public Use
  Company Number: DE-BAYER-200711126BVD

PATIENT
  Age: 37 Year
  Sex: Male
  Weight: 63 kg

DRUGS (15)
  1. AVELOX [Suspect]
     Route: 048
     Dates: start: 20070303, end: 20070307
  2. MOXIFLOXACIN HCL [Suspect]
     Indication: BRONCHITIS
     Route: 048
     Dates: start: 20070122, end: 20070131
  3. PIPERACILLIN [Suspect]
     Route: 042
     Dates: start: 20070302, end: 20070309
  4. PANTOPRAZOLE SODIUM [Concomitant]
     Route: 048
     Dates: start: 20070225, end: 20070225
  5. PANTOPRAZOLE SODIUM [Concomitant]
     Route: 048
     Dates: start: 20070309, end: 20070506
  6. CALCILAC [Concomitant]
     Route: 048
     Dates: start: 20070314, end: 20070422
  7. COMBACTAM [Concomitant]
     Route: 042
     Dates: start: 20070302, end: 20070309
  8. DECORTIN H [Concomitant]
     Route: 048
     Dates: start: 20070310, end: 20070505
  9. PARACETAMOL [Concomitant]
     Route: 048
     Dates: start: 20040101, end: 20070503
  10. PARACETAMOL [Concomitant]
     Route: 054
     Dates: start: 20050101, end: 20070430
  11. FAKTU [Concomitant]
     Route: 054
     Dates: start: 20060101, end: 20070330
  12. DOLOPROCT [Concomitant]
     Route: 065
     Dates: start: 20070401, end: 20070401
  13. HAMETUM [Concomitant]
     Route: 054
     Dates: start: 20070401, end: 20070503
  14. ASPIRIN [Concomitant]
     Route: 048
     Dates: start: 20010101, end: 20070201
  15. IBUPROFEN [Concomitant]
     Route: 048
     Dates: start: 20050101, end: 20070201

REACTIONS (1)
  - THROMBOTIC THROMBOCYTOPENIC PURPURA [None]
